FAERS Safety Report 5930349-2 (Version None)
Quarter: 2008Q4

REPORT INFORMATION
  Report Type: 
  Country: None (occurrence: None)
  Receive Date: 20081023
  Receipt Date: 20081010
  Transmission Date: 20090506
  Serious: Yes (Hospitalization)
  Sender: FDA-Public Use
  Company Number: 2008002689

PATIENT
  Age: 57 Year
  Sex: Male

DRUGS (9)
  1. ERLOTINIB (ERLOTINIB) (TABLET) (ERLOTINIB) [Suspect]
     Indication: LUNG ADENOCARCINOMA
     Dosage: (150 MG, QD) ,ORAL; (100 MG, QD) ,ORAL; (75 MG, QD) ,ORAL
     Route: 048
     Dates: start: 20080623, end: 20080707
  2. ERLOTINIB (ERLOTINIB) (TABLET) (ERLOTINIB) [Suspect]
     Indication: LUNG ADENOCARCINOMA
     Dosage: (150 MG, QD) ,ORAL; (100 MG, QD) ,ORAL; (75 MG, QD) ,ORAL
     Route: 048
     Dates: start: 20080519, end: 20080821
  3. ERLOTINIB (ERLOTINIB) (TABLET) (ERLOTINIB) [Suspect]
     Indication: LUNG ADENOCARCINOMA
     Dosage: (150 MG, QD) ,ORAL; (100 MG, QD) ,ORAL; (75 MG, QD) ,ORAL
     Route: 048
     Dates: start: 20080708, end: 20080821
  4. BISOLVON (BROMHEXINE HYDROCHLORIDE) [Concomitant]
  5. MUCOSAL (ACETYLCYSTEINE) [Concomitant]
  6. MOBIC [Concomitant]
  7. FAMOTIDINE [Concomitant]
  8. CODEINE PHOSPHATE (CODEINE PHOSPHATE) [Concomitant]
  9. MUCOSTA (REBAMIPIDE) [Concomitant]

REACTIONS (2)
  - PNEUMOTHORAX [None]
  - RASH [None]
